FAERS Safety Report 10745619 (Version 1)
Quarter: 2015Q1

REPORT INFORMATION
  Report Type: Spontaneous
  Country: US (occurrence: None)
  Receive Date: 20150127
  Receipt Date: 20150127
  Transmission Date: 20150721
  Serious: Yes (Life-Threatening, Hospitalization)
  Sender: FDA-Public Use
  Company Number: None

PATIENT
  Age: 28 Year
  Sex: Female
  Weight: 43.09 kg

DRUGS (2)
  1. BACLOFEN. [Suspect]
     Active Substance: BACLOFEN
  2. SYNCHROMED [Concomitant]
     Dosage: MODEL #8637.40, SERIAL #NGV419665H

REACTIONS (10)
  - Speech disorder [None]
  - Hypotonia [None]
  - Overdose [None]
  - Mental status changes [None]
  - Device malfunction [None]
  - Seizure [None]
  - Syncope [None]
  - Apnoea [None]
  - Presyncope [None]
  - Product quality issue [None]

NARRATIVE: CASE EVENT DATE: 20141202
